FAERS Safety Report 5168234-9 (Version None)
Quarter: 2006Q4

REPORT INFORMATION
  Report Type: 
  Country: None (occurrence: None)
  Receive Date: 20061208
  Receipt Date: 20061103
  Transmission Date: 20070319
  Serious: Yes (Hospitalization)
  Sender: FDA-Public Use
  Company Number: FR-GLAXOSMITHKLINE-B0446208A

PATIENT
  Age: 86 Year
  Sex: Male

DRUGS (13)
  1. AUGMENTIN '125' [Suspect]
     Indication: URINARY TRACT INFECTION
     Route: 048
     Dates: start: 20060731, end: 20060804
  2. CIPROFLOXACIN [Suspect]
     Indication: URINARY TRACT INFECTION
     Route: 048
     Dates: start: 20060731, end: 20060804
  3. ZOMETA [Suspect]
     Indication: DRUG USE FOR UNKNOWN INDICATION
     Route: 042
     Dates: start: 20060802, end: 20060802
  4. PREVISCAN [Suspect]
     Indication: CEREBRAL ARTERY EMBOLISM
     Route: 048
     Dates: start: 20060802
  5. MOTILIUM [Suspect]
     Indication: NAUSEA
     Route: 048
     Dates: start: 20060731, end: 20060807
  6. REMINYL [Concomitant]
     Indication: AGGRESSION
     Route: 048
     Dates: start: 20060731
  7. RENITEC [Concomitant]
     Indication: DRUG USE FOR UNKNOWN INDICATION
  8. TENORMIN [Concomitant]
     Indication: DRUG USE FOR UNKNOWN INDICATION
     Dates: end: 20060807
  9. NEXIUM [Concomitant]
     Indication: DRUG USE FOR UNKNOWN INDICATION
     Dates: end: 20060807
  10. OSTRAM [Concomitant]
     Indication: DRUG USE FOR UNKNOWN INDICATION
  11. CONTRAMAL [Concomitant]
     Indication: DRUG USE FOR UNKNOWN INDICATION
     Dates: end: 20060807
  12. EQUANIL [Concomitant]
     Indication: AGGRESSION
     Dates: end: 20060807
  13. DEDROGYL [Concomitant]
     Dates: start: 20060823

REACTIONS (4)
  - EOSINOPHILIA [None]
  - PYREXIA [None]
  - RASH [None]
  - VISION BLURRED [None]
